FAERS Safety Report 7805556-4 (Version None)
Quarter: 2011Q4

REPORT INFORMATION
  Report Type: 
  Country: None (occurrence: None)
  Receive Date: 20111010
  Receipt Date: 20111004
  Transmission Date: 20120403
  Serious: Yes (Disabling)
  Sender: FDA-Public Use
  Company Number: JP-MERCK-1106USA01880

PATIENT
  Age: 69 Year
  Sex: Male
  Weight: 77 kg

DRUGS (11)
  1. ISOSORBIDE MONONITRATE [Concomitant]
     Route: 048
     Dates: start: 20061005
  2. CARVEDILOL [Concomitant]
     Route: 048
     Dates: start: 20061005
  3. AMARYL [Concomitant]
     Route: 048
     Dates: start: 20090903
  4. DIOVAN [Concomitant]
     Route: 048
     Dates: start: 20070322
  5. PLAVIX [Concomitant]
     Route: 048
     Dates: start: 20061005
  6. ASPIRIN [Concomitant]
     Route: 048
     Dates: start: 20061005
  7. CRESTOR [Concomitant]
     Route: 048
     Dates: start: 20090403
  8. ACTOS [Concomitant]
     Route: 048
     Dates: start: 20060525
  9. ATELEC [Concomitant]
     Route: 048
     Dates: start: 20080313
  10. JANUVIA [Suspect]
     Indication: DIABETES MELLITUS
     Route: 048
     Dates: start: 20110204, end: 20110318
  11. RABEPRAZOLE SODIUM [Concomitant]
     Route: 048
     Dates: start: 20100730

REACTIONS (1)
  - RENAL IMPAIRMENT [None]
